FAERS Safety Report 25285882 (Version 1)
Quarter: 2025Q2

REPORT INFORMATION
  Report Type: Spontaneous
  Country: BR (occurrence: BR)
  Receive Date: 20250509
  Receipt Date: 20250509
  Transmission Date: 20250717
  Serious: Yes (Hospitalization, Other)
  Sender: NOVO NORDISK
  Company Number: BR-NOVOPROD-1420734

PATIENT
  Age: 633 Month
  Sex: Female
  Weight: 99 kg

DRUGS (1)
  1. WEGOVY [Suspect]
     Active Substance: SEMAGLUTIDE
     Indication: Weight control
     Dates: start: 20250423, end: 20250424

REACTIONS (7)
  - Near death experience [Unknown]
  - Vomiting [Not Recovered/Not Resolved]
  - Diarrhoea [Recovered/Resolved]
  - Hypertension [Not Recovered/Not Resolved]
  - Nausea [Not Recovered/Not Resolved]
  - Headache [Not Recovered/Not Resolved]
  - Wrong technique in product usage process [Recovered/Resolved]

NARRATIVE: CASE EVENT DATE: 20250423
